FAERS Safety Report 21461617 (Version 1)
Quarter: 2022Q4

REPORT INFORMATION
  Report Type: Spontaneous
  Country: ES (occurrence: ES)
  Receive Date: 20221015
  Receipt Date: 20221015
  Transmission Date: 20230113
  Serious: Yes (Life-Threatening, Hospitalization, Other)
  Sender: FDA-Public Use
  Company Number: None

PATIENT
  Age: 77 Year
  Sex: Male

DRUGS (24)
  1. DEXMEDETOMIDINE HYDROCHLORIDE [Suspect]
     Active Substance: DEXMEDETOMIDINE HYDROCHLORIDE
     Indication: Confusional state
  2. QUETIAPINE FUMARATE [Suspect]
     Active Substance: QUETIAPINE FUMARATE
     Indication: Confusional state
  3. CEFTAZIDIME PENTAHYDRATE [Suspect]
     Active Substance: CEFTAZIDIME
     Indication: Device related infection
  4. CLOXACILLIN [Suspect]
     Active Substance: CLOXACILLIN
     Indication: Device related infection
  5. HALOPERIDOL [Suspect]
     Active Substance: HALOPERIDOL
     Indication: Confusional state
  6. CLONIDINE [Suspect]
     Active Substance: CLONIDINE
     Indication: Confusional state
  7. MORPHINE [Suspect]
     Active Substance: MORPHINE
     Indication: Post laminectomy syndrome
     Dosage: PUMP
  8. OLANZAPINE [Suspect]
     Active Substance: OLANZAPINE
     Indication: Confusional state
  9. MORPHINE [Concomitant]
     Active Substance: MORPHINE
     Indication: Post laminectomy syndrome
     Dosage: DOSE DECREASED
  10. CLOXACILLIN [Concomitant]
     Active Substance: CLOXACILLIN
     Indication: Postoperative wound infection
  11. CEFTAZIDIME PENTAHYDRATE [Concomitant]
     Active Substance: CEFTAZIDIME
     Indication: Postoperative wound infection
  12. MORPHINE [Concomitant]
     Active Substance: MORPHINE
     Indication: Post laminectomy syndrome
     Dosage: DESCENDING ORAL MORPHINE REGIMEN
  13. MORPHINE [Suspect]
     Active Substance: MORPHINE
     Indication: Post laminectomy syndrome
     Dosage: 50 MG TID
  14. MORPHINE [Suspect]
     Active Substance: MORPHINE
     Indication: Post laminectomy syndrome
     Dosage: 7.997 MILLIGRAM PER DAY THROUGH INTRATHECAL MORPHINE (MI) PUMP CARRIER
  15. MORPHINE [Suspect]
     Active Substance: MORPHINE
     Indication: Post laminectomy syndrome
     Dosage: 25% OF THE EQUIVALENT DOSE OF INTRATHECAL MORPHINE
  16. MORPHINE [Concomitant]
     Active Substance: MORPHINE
     Indication: Pain
     Dosage: MST STARTED IN ASCENDING DOSES, DOSE INCREASED, PUMP
  17. MORPHINE [Concomitant]
     Active Substance: MORPHINE
     Indication: Pain
     Dosage: 7.997 MILLIGRAM PER DAY THROUGH INTRATHECAL MORPHINE (MI) PUMP CARRIER
  18. MORPHINE [Concomitant]
     Active Substance: MORPHINE
     Indication: Pain
     Dosage: 120 MG EVERY 8 HOURS
  19. MORPHINE [Concomitant]
     Active Substance: MORPHINE
     Indication: Pain
     Dosage: 150 MG TID
  20. MORPHINE [Concomitant]
     Active Substance: MORPHINE
     Indication: Pain
     Dosage: 200 MG EVERY 8 HOURS
  21. MORPHINE [Concomitant]
     Active Substance: MORPHINE
     Indication: Post laminectomy syndrome
     Dosage: ORAL CONTROLLED-RELEASE MORPHINE (MST) WAS STARTED PROGRESSIVELY UNTIL 50%
  22. MORPHINE [Suspect]
     Active Substance: MORPHINE
     Indication: Analgesic therapy
     Dosage: PUMP, 50 PERCENT OF IM WAS REPLACED WITH 25 PERCENT
  23. MORPHINE [Concomitant]
     Active Substance: MORPHINE
     Indication: Pain
     Dosage: PUMP, INCREASED TO 50 PERCENT OF THE DOSE OF MI
  24. CLOXACILLIN [Suspect]
     Active Substance: CLOXACILLIN
     Indication: Postoperative wound infection
     Dosage: UNK

REACTIONS (11)
  - Somnolence [Recovering/Resolving]
  - Respiratory failure [Recovered/Resolved]
  - Drug withdrawal syndrome [Recovering/Resolving]
  - Hypersomnia [Recovered/Resolved]
  - Haemodynamic instability [Recovered/Resolved]
  - Drug ineffective [Unknown]
  - Toxicity to various agents [Unknown]
  - Delirium [Recovering/Resolving]
  - Confusional state [Recovering/Resolving]
  - Condition aggravated [Recovered/Resolved]
  - Off label use [Unknown]
